FAERS Safety Report 4450664-1 (Version None)
Quarter: 2004Q3

REPORT INFORMATION
  Report Type: 
  Country: None (occurrence: None)
  Receive Date: 20040914
  Receipt Date: 20040914
  Transmission Date: 20050211
  Serious: No
  Sender: FDA-Public Use
  Company Number: None

PATIENT

DRUGS (1)
  1. ACETYLCYSTEINE 20 % SOLUTION 3X 10 ML VIALS ROXANE LABS [Suspect]
     Indication: DRUG TOXICITY

REACTIONS (1)
  - MEDICATION ERROR [None]
